FAERS Safety Report 23341154 (Version 1)
Quarter: 2023Q4

REPORT INFORMATION
  Report Type: Spontaneous
  Country: US (occurrence: US)
  Receive Date: 20231227
  Receipt Date: 20231227
  Transmission Date: 20240109
  Serious: Yes (Death, Other)
  Sender: FDA-Public Use
  Company Number: US-AMGEN-USASP2023228689

PATIENT

DRUGS (5)
  1. FILGRASTIM [Suspect]
     Active Substance: FILGRASTIM
     Indication: Acute myeloid leukaemia
     Dosage: 300 MICROGRAM, QD, DAY 1-6
     Route: 065
  2. Lintuzumab Ac 225 [Concomitant]
     Indication: Acute myeloid leukaemia
     Dosage: UNK UNK, QD, DAY 8 PLUS MINUS 1 DAY
     Route: 065
  3. CLADRIBINE [Concomitant]
     Active Substance: CLADRIBINE
     Indication: Acute myeloid leukaemia
     Dosage: 5 MILLIGRAM/SQ. METER, ON DAYS 2-6
     Route: 065
  4. CYTARABINE [Concomitant]
     Active Substance: CYTARABINE
     Indication: Acute myeloid leukaemia
     Dosage: 2 GRAM PER SQUARE METRE, ON DAYS 2-6
     Route: 065
  5. MITOXANTRONE [Concomitant]
     Active Substance: MITOXANTRONE HYDROCHLORIDE
     Indication: Acute myeloid leukaemia
     Dosage: 10 MILLIGRAM/SQ. METER, ON DAYS 2-4
     Route: 065

REACTIONS (1)
  - Acute myeloid leukaemia recurrent [Fatal]
